FAERS Safety Report 9617237 (Version 1)
Quarter: 2013Q4

REPORT INFORMATION
  Report Type: Report from Study
  Country: BR (occurrence: BR)
  Receive Date: 20131011
  Receipt Date: 20131011
  Transmission Date: 20140711
  Serious: Yes (Other)
  Sender: FDA-Public Use
  Company Number: BR-ABBVIE-13P-020-1154793-00

PATIENT
  Sex: Male
  Weight: 75 kg

DRUGS (5)
  1. HUMIRA [Suspect]
     Indication: CROHN^S DISEASE
     Route: 058
     Dates: start: 20130912
  2. MESALAZINE [Concomitant]
     Indication: CROHN^S DISEASE
     Route: 048
     Dates: start: 2009
  3. AZATHIOPRINE [Concomitant]
     Indication: CROHN^S DISEASE
     Route: 048
     Dates: start: 2009
  4. PREDNISONE [Concomitant]
     Indication: PAIN
     Route: 048
     Dates: start: 2009
  5. PREDNISONE [Concomitant]
     Indication: CROHN^S DISEASE

REACTIONS (7)
  - Abdominal hernia [Unknown]
  - Muscle rupture [Unknown]
  - Myositis [Unknown]
  - Procedural pain [Unknown]
  - Dysphonia [Unknown]
  - Incision site erythema [Unknown]
  - Incision site complication [Unknown]
